FAERS Safety Report 5636339-1 (Version None)
Quarter: 2008Q1

REPORT INFORMATION
  Report Type: 
  Country: None (occurrence: None)
  Receive Date: 20080225
  Receipt Date: 20080220
  Transmission Date: 20080703
  Serious: Yes (Other)
  Sender: FDA-Public Use
  Company Number: PHRM2008FR00884

PATIENT
  Age: 59 Year
  Sex: Female

DRUGS (5)
  1. FEMARA [Suspect]
     Indication: BREAST CANCER
     Route: 048
     Dates: start: 20070201
  2. DETENSIEL [Concomitant]
     Indication: HYPERTENSION
     Route: 048
  3. COOLMETEC [Concomitant]
     Indication: HYPERTENSION
     Route: 048
  4. PLAVIX [Concomitant]
     Indication: CEREBROVASCULAR ACCIDENT
  5. TAHOR [Concomitant]
     Route: 048

REACTIONS (4)
  - BLOOD PRESSURE INCREASED [None]
  - EYE PAIN [None]
  - VISUAL DISTURBANCE [None]
  - VITREOUS FLOATERS [None]
